FAERS Safety Report 23125484 (Version 1)
Quarter: 2023Q4

REPORT INFORMATION
  Report Type: Spontaneous
  Country: JP (occurrence: JP)
  Receive Date: 20231030
  Receipt Date: 20231030
  Transmission Date: 20240110
  Serious: Yes (Other)
  Sender: FDA-Public Use
  Company Number: JP-BAYER-2023A026580

PATIENT
  Age: 40 Year
  Sex: Female
  Weight: 65 kg

DRUGS (11)
  1. YAZ [Suspect]
     Active Substance: DROSPIRENONE\ETHINYL ESTRADIOL
     Indication: Dysmenorrhoea
     Dosage: UNK
     Dates: end: 20210220
  2. SENKYUCHACHOSAN [Concomitant]
  3. TIZANIDINE [Concomitant]
     Active Substance: TIZANIDINE
  4. ALLELOCK [Concomitant]
     Active Substance: OLOPATADINE HYDROCHLORIDE
  5. PRANLUKAST [Concomitant]
     Active Substance: PRANLUKAST
  6. VALPROATE SODIUM [Concomitant]
     Active Substance: VALPROATE SODIUM
  7. STRATTERA [Concomitant]
     Active Substance: ATOMOXETINE HYDROCHLORIDE
  8. TRINTELLIX [Concomitant]
     Active Substance: VORTIOXETINE HYDROBROMIDE
  9. DESYREL [Concomitant]
     Active Substance: TRAZODONE HYDROCHLORIDE
  10. ROZEREM [Concomitant]
     Active Substance: RAMELTEON
  11. MILY [Concomitant]

REACTIONS (5)
  - Embolic cerebral infarction [None]
  - Deep vein thrombosis [None]
  - Pulmonary embolism [None]
  - Hemiplegia [Not Recovered/Not Resolved]
  - Gait disturbance [Not Recovered/Not Resolved]

NARRATIVE: CASE EVENT DATE: 20210201
